FAERS Safety Report 17295427 (Version 1)
Quarter: 2020Q1

REPORT INFORMATION
  Report Type: Spontaneous
  Country: AR (occurrence: AR)
  Receive Date: 20200121
  Receipt Date: 20200121
  Transmission Date: 20200409
  Serious: Yes (Other)
  Sender: FDA-Public Use
  Company Number: AR-PFIZER INC-2020027303

PATIENT
  Sex: Female

DRUGS (1)
  1. IBRANCE [Suspect]
     Active Substance: PALBOCICLIB

REACTIONS (4)
  - Carpal tunnel syndrome [Unknown]
  - Vitamin B12 deficiency [Unknown]
  - Neuropathy peripheral [Recovered/Resolved]
  - Folate deficiency [Recovered/Resolved]
